FAERS Safety Report 15877730 (Version 2)
Quarter: 2019Q1

REPORT INFORMATION
  Report Type: Report from Study
  Country: GB (occurrence: GB)
  Receive Date: 20190128
  Receipt Date: 20190215
  Transmission Date: 20190417
  Serious: Yes (Other)
  Sender: FDA-Public Use
  Company Number: GB-BIOGEN-2019BI00687909

PATIENT
  Sex: Male

DRUGS (1)
  1. PLEGRIDY [Suspect]
     Active Substance: PEGINTERFERON BETA-1A
     Indication: RELAPSING-REMITTING MULTIPLE SCLEROSIS
     Route: 065
     Dates: start: 201705

REACTIONS (4)
  - Product administered at inappropriate site [Not Recovered/Not Resolved]
  - Injection site erythema [Not Recovered/Not Resolved]
  - Autism spectrum disorder [Unknown]
  - Injection site pain [Not Recovered/Not Resolved]
